FAERS Safety Report 11838068 (Version 1)
Quarter: 2015Q4

REPORT INFORMATION
  Report Type: Spontaneous
  Country: US (occurrence: US)
  Receive Date: 20151215
  Receipt Date: 20151215
  Transmission Date: 20160305
  Serious: Yes (Other)
  Sender: FDA-Public Use
  Company Number: US-GLAXOSMITHKLINE-US2015176336

PATIENT
  Age: 44 Year
  Sex: Female

DRUGS (1)
  1. BENLYSTA [Suspect]
     Active Substance: BELIMUMAB
     Indication: PRODUCT USED FOR UNKNOWN INDICATION

REACTIONS (10)
  - Chest pain [Not Recovered/Not Resolved]
  - Paraesthesia [Recovered/Resolved]
  - Injection site erythema [Not Recovered/Not Resolved]
  - Chest discomfort [Not Recovered/Not Resolved]
  - Cellulitis [Not Recovered/Not Resolved]
  - Urticaria [Not Recovered/Not Resolved]
  - Oropharyngeal pain [Unknown]
  - Feeling hot [Not Recovered/Not Resolved]
  - Rash [Not Recovered/Not Resolved]
  - Dyspnoea [Unknown]

NARRATIVE: CASE EVENT DATE: 20151210
